FAERS Safety Report 8955142 (Version 2)
Quarter: 2013Q1

REPORT INFORMATION
  Report Type: Report from Study
  Country: US (occurrence: US)
  Receive Date: 20121207
  Receipt Date: 20130109
  Transmission Date: 20140127
  Serious: Yes (Hospitalization, Other)
  Sender: FDA-Public Use
  Company Number: US-US-EMD SERONO, INC.-7179477

PATIENT
  Age: 65 Year
  Sex: Female

DRUGS (3)
  1. REBIF [Suspect]
     Indication: MULTIPLE SCLEROSIS
     Route: 058
     Dates: start: 20080403, end: 20121212
  2. REBIF [Suspect]
     Route: 058
  3. IBUPROFEN [Concomitant]
     Indication: PREMEDICATION

REACTIONS (7)
  - Nephrolithiasis [Not Recovered/Not Resolved]
  - Device malfunction [Unknown]
  - Escherichia infection [Unknown]
  - Urinary tract infection [Unknown]
  - Hallucination [Recovering/Resolving]
  - Faecal incontinence [Not Recovered/Not Resolved]
  - Multiple sclerosis relapse [Unknown]
